FAERS Safety Report 9475948 (Version 1)
Quarter: 2013Q3

REPORT INFORMATION
  Report Type: Spontaneous
  Country: US (occurrence: US)
  Receive Date: 20130826
  Receipt Date: 20130826
  Transmission Date: 20140515
  Serious: Yes (Hospitalization)
  Sender: FDA-Public Use
  Company Number: US-BAYER-2013-102578

PATIENT
  Age: 27 Year
  Sex: Female

DRUGS (25)
  1. YAZ [Suspect]
  2. YASMIN [Suspect]
     Indication: CONTRACEPTION
  3. FENTANYL [Concomitant]
     Dosage: UNK
     Dates: start: 20060305
  4. TUSSIONEX PENNKINETIC [Concomitant]
  5. LEVAQUIN [Concomitant]
  6. TOPAMAX [Concomitant]
     Dosage: UNK
     Dates: start: 20060305
  7. PREVACID [Concomitant]
     Dosage: UNK
     Dates: start: 20060305
  8. TRAZODONE [Concomitant]
     Dosage: UNK
     Dates: start: 20060305
  9. XANAX [Concomitant]
     Dosage: UNK
     Dates: start: 20060305
  10. NEURONTIN [Concomitant]
     Dosage: UNK
     Dates: start: 20060305
  11. GLUCOPHAGE [Concomitant]
     Dosage: UNK
     Dates: start: 20060305
  12. EFFEXOR [Concomitant]
     Dosage: UNK
     Dates: start: 20060305
  13. WELLBUTRIN SR [Concomitant]
     Dosage: UNK
     Dates: start: 20060305
  14. MIRAPEX [Concomitant]
     Dosage: UNK
     Dates: start: 20060305
  15. REGLAN [Concomitant]
     Dosage: UNK
     Dates: start: 20060305
  16. OXYCONTIN [Concomitant]
     Dosage: UNK
     Dates: start: 20060305
  17. OXYCODONE [Concomitant]
     Dosage: UNK
     Dates: start: 20060305
  18. ALLOPURINOL [Concomitant]
     Dosage: UNK
     Dates: start: 20060305
  19. LODINE [Concomitant]
     Dosage: UNK
     Dates: start: 20060305
  20. DIHYDROERGOTAMINE [Concomitant]
     Dosage: UNK
     Dates: start: 20060305
  21. PERCOCET [Concomitant]
  22. CARDIZEM [Concomitant]
  23. BENADRYL [Concomitant]
  24. VISTARIL [Concomitant]
  25. MECLIZINE [Concomitant]

REACTIONS (1)
  - Deep vein thrombosis [Recovered/Resolved]
